FAERS Safety Report 19058403 (Version 1)
Quarter: 2021Q1

REPORT INFORMATION
  Report Type: Report from Study
  Country: US (occurrence: US)
  Receive Date: 20210325
  Receipt Date: 20210325
  Transmission Date: 20210420
  Serious: Yes (Hospitalization, Other)
  Sender: FDA-Public Use
  Company Number: US-ASTRAZENECA-2021A148093

PATIENT

DRUGS (1)
  1. DURVALUMAB. [Suspect]
     Active Substance: DURVALUMAB
     Indication: NON-SMALL CELL LUNG CANCER
     Dosage: AT A STANDARD DOSE OF 10 MG/KG WITH NO DOSE REDUCTIONS FOR UP TO 12 MONTHS AS TOLERATED
     Route: 042

REACTIONS (1)
  - Duodenal ulcer perforation [Unknown]
